FAERS Safety Report 10484225 (Version 1)
Quarter: 2014Q3

REPORT INFORMATION
  Report Type: Spontaneous
  Country: FR (occurrence: FR)
  Receive Date: 20140930
  Receipt Date: 20140930
  Transmission Date: 20150326
  Serious: Yes (Death, Hospitalization)
  Sender: FDA-Public Use
  Company Number: FR-DSJP-DSE-2014-122966

PATIENT

DRUGS (4)
  1. OLMETEC [Suspect]
     Active Substance: OLMESARTAN MEDOXOMIL
     Indication: HYPERTENSION
     Dosage: UNK
     Route: 048
  2. ZANIDIP [Concomitant]
     Active Substance: LERCANIDIPINE HYDROCHLORIDE
     Indication: HYPERTENSION
     Dosage: UNK
     Dates: end: 2008
  3. VASTAREL [Concomitant]
     Active Substance: TRIMETAZIDINE DIHYDROCHLORIDE
     Indication: PRODUCT USED FOR UNKNOWN INDICATION
     Route: 048
  4. NIPENT [Suspect]
     Active Substance: PENTOSTATIN
     Indication: HAIRY CELL LEUKAEMIA
     Dosage: 6 MG, CYCLIC
     Route: 042
     Dates: start: 20081013, end: 20090216

REACTIONS (3)
  - Diarrhoea [Not Recovered/Not Resolved]
  - Tumour lysis syndrome [Fatal]
  - Renal failure acute [Fatal]

NARRATIVE: CASE EVENT DATE: 200811
